FAERS Safety Report 14563252 (Version 2)
Quarter: 2018Q1

REPORT INFORMATION
  Report Type: Spontaneous
  Country: JP (occurrence: JP)
  Receive Date: 20180222
  Receipt Date: 20180309
  Transmission Date: 20180509
  Serious: Yes (Other)
  Sender: FDA-Public Use
  Company Number: JP-GLAXOSMITHKLINE-JP2018JPN027344

PATIENT
  Age: 80 Year
  Sex: Male

DRUGS (3)
  1. ZOVIRAX [Suspect]
     Active Substance: ACYCLOVIR
     Dosage: UNK
     Route: 041
     Dates: start: 20180218
  2. ZOVIRAX [Suspect]
     Active Substance: ACYCLOVIR
     Indication: HERPES ZOSTER OTICUS
     Dosage: 500 MG, 1D
     Route: 041
     Dates: start: 20180208, end: 20180215
  3. LYRICA [Concomitant]
     Active Substance: PREGABALIN
     Indication: EAR PAIN
     Dosage: UNK
     Dates: start: 20180208

REACTIONS (3)
  - Nausea [Recovering/Resolving]
  - Facial paralysis [Unknown]
  - Diplopia [Unknown]

NARRATIVE: CASE EVENT DATE: 201802
